FAERS Safety Report 19603740 (Version 2)
Quarter: 2021Q3

REPORT INFORMATION
  Report Type: Spontaneous
  Country: DE (occurrence: DE)
  Receive Date: 20210723
  Receipt Date: 20210827
  Transmission Date: 20211014
  Serious: Yes (Other)
  Sender: FDA-Public Use
  Company Number: DE-MYLANLABS-2021M1043691

PATIENT
  Age: 49 Year
  Sex: Male

DRUGS (4)
  1. CLOZAPINE. [Suspect]
     Active Substance: CLOZAPINE
     Dosage: 500 MILLIGRAM, QD
     Route: 048
     Dates: start: 20110517
  2. CLOZAPINE. [Suspect]
     Active Substance: CLOZAPINE
     Indication: SCHIZOPHRENIA
     Dosage: 600 MILLIGRAM, QD (250?600 MG QD)
     Route: 048
     Dates: start: 20110517
  3. HALOPERIDOL DECANOATE. [Concomitant]
     Active Substance: HALOPERIDOL DECANOATE
     Indication: PSYCHIATRIC DISORDER PROPHYLAXIS
     Dosage: 50 MILLIGRAM
     Route: 065
  4. LORAZEPAM. [Concomitant]
     Active Substance: LORAZEPAM
     Indication: PSYCHIATRIC DISORDER PROPHYLAXIS
     Dosage: 1 MILLIGRAM

REACTIONS (2)
  - Product use in unapproved indication [Unknown]
  - Appendicitis perforated [Recovered/Resolved]
